FAERS Safety Report 25710355 (Version 1)
Quarter: 2025Q3

REPORT INFORMATION
  Report Type: Spontaneous
  Country: US (occurrence: None)
  Receive Date: 20250820
  Receipt Date: 20250820
  Transmission Date: 20251021
  Serious: Yes (Other)
  Sender: FDA-CTU
  Company Number: None

PATIENT
  Age: 25 Year
  Sex: Female
  Weight: 83.91 kg

DRUGS (1)
  1. LILETTA [Suspect]
     Active Substance: LEVONORGESTREL

REACTIONS (4)
  - Product communication issue [None]
  - Endometriosis [None]
  - Ovarian cyst [None]
  - Complication associated with device [None]

NARRATIVE: CASE EVENT DATE: 20230118
